FAERS Safety Report 6646014-2 (Version None)
Quarter: 2010Q1

REPORT INFORMATION
  Report Type: 
  Country: None (occurrence: None)
  Receive Date: 20100323
  Receipt Date: 20100310
  Transmission Date: 20100710
  Serious: Yes (Other)
  Sender: FDA-Public Use
  Company Number: JP-PFIZER INC-2010028733

PATIENT
  Age: 39 Year
  Sex: Female

DRUGS (1)
  1. ZOLOFT [Suspect]
     Indication: DEPRESSION
     Dosage: 50 MG/DAY
     Route: 048
     Dates: start: 20100216, end: 20100226

REACTIONS (2)
  - IMPAIRED DRIVING ABILITY [None]
  - PHOTOPHOBIA [None]
